FAERS Safety Report 8359722-2 (Version None)
Quarter: 2012Q2

REPORT INFORMATION
  Report Type: 
  Country: None (occurrence: None)
  Receive Date: 20120515
  Receipt Date: 20120503
  Transmission Date: 20120825
  Serious: No
  Sender: FDA-Public Use
  Company Number: US-JNJFOC-20120504681

PATIENT
  Sex: Male

DRUGS (3)
  1. OXYCODONE HCL [Concomitant]
     Indication: PAIN
     Route: 048
  2. DURAGESIC-100 [Suspect]
     Indication: PAIN
     Dosage: 100 UG/HR PATCHES
     Route: 062
  3. UNKNOWN MULTIPLE MEDICATION [Concomitant]
     Route: 065

REACTIONS (3)
  - PRODUCT QUALITY ISSUE [None]
  - WRONG TECHNIQUE IN DRUG USAGE PROCESS [None]
  - HYPERHIDROSIS [None]
